FAERS Safety Report 14507578 (Version 2)
Quarter: 2018Q2

REPORT INFORMATION
  Report Type: Report from Study
  Country: US (occurrence: US)
  Receive Date: 20180208
  Receipt Date: 20180430
  Transmission Date: 20180711
  Serious: Yes (Hospitalization, Disabling)
  Sender: FDA-Public Use
  Company Number: US-ACTELION-A-NJ2018-167144

PATIENT
  Age: 51 Year
  Sex: Female

DRUGS (17)
  1. RENA-VITE [Concomitant]
     Active Substance: ASCORBIC ACID\BIOTIN\CALCIUM PANTOTHENATE\CYANOCOBALAMIN\FOLIC ACID\NIACINAMIDE\PYRIDOXINE HYDROCHLORIDE\RIBOFLAVIN\THIAMINE MONONITRATE
  2. OPSUMIT [Suspect]
     Active Substance: MACITENTAN
     Indication: PULMONARY ARTERIAL HYPERTENSION
     Dosage: 10 MG, QD
     Route: 048
     Dates: start: 20160630
  3. LEVOTHYROXINE. [Concomitant]
     Active Substance: LEVOTHYROXINE
  4. HYDROXYZINE PAMOATE. [Concomitant]
     Active Substance: HYDROXYZINE PAMOATE
  5. METOPROLOL. [Concomitant]
     Active Substance: METOPROLOL
  6. LORATADINE. [Concomitant]
     Active Substance: LORATADINE
  7. URSODIOL. [Concomitant]
     Active Substance: URSODIOL
  8. HYDROMORPHONE [Concomitant]
     Active Substance: HYDROMORPHONE
  9. OMEPRAZOLE. [Concomitant]
     Active Substance: OMEPRAZOLE
  10. TIMOLOL. [Concomitant]
     Active Substance: TIMOLOL
  11. FOLIC ACID. [Concomitant]
     Active Substance: FOLIC ACID
  12. BENADRYL [Concomitant]
     Active Substance: DIPHENHYDRAMINE HYDROCHLORIDE
  13. CALCIUM [Concomitant]
     Active Substance: CALCIUM
  14. FERRIPROX [Concomitant]
     Active Substance: DEFERIPRONE
  15. TRAVOPROST. [Concomitant]
     Active Substance: TRAVOPROST
  16. LOSARTAN. [Concomitant]
     Active Substance: LOSARTAN
  17. CARTIA XT [Concomitant]
     Active Substance: DILTIAZEM HYDROCHLORIDE

REACTIONS (4)
  - Fluid retention [Unknown]
  - Cholecystitis infective [Unknown]
  - Dialysis [Unknown]
  - Hepatomegaly [Not Recovered/Not Resolved]
